FAERS Safety Report 16149744 (Version 1)
Quarter: 2019Q2

REPORT INFORMATION
  Report Type: Report from Study
  Country: CA (occurrence: CA)
  Receive Date: 20190402
  Receipt Date: 20190402
  Transmission Date: 20190711
  Serious: Yes (Death, Other)
  Sender: FDA-Public Use
  Company Number: CA-PFIZER INC-2015186238

PATIENT
  Age: 64 Year
  Sex: Male

DRUGS (10)
  1. DEXAMETHASONE. [Interacting]
     Active Substance: DEXAMETHASONE
     Indication: PELVIC PAIN
     Dosage: 0.75 MG, DAILY (UP TO 16MG)
     Route: 048
  2. METHADONE [Interacting]
     Active Substance: METHADONE HYDROCHLORIDE
     Indication: PELVIC PAIN
     Dosage: 24 MG, DAILY
     Route: 048
     Dates: start: 2013
  3. METHADONE [Interacting]
     Active Substance: METHADONE HYDROCHLORIDE
     Indication: BACK PAIN
  4. ACETAMINOPHEN. [Suspect]
     Active Substance: ACETAMINOPHEN
     Indication: PELVIC PAIN
     Dosage: 3 G, DAILY
     Route: 065
     Dates: start: 2013
  5. ACETAMINOPHEN. [Suspect]
     Active Substance: ACETAMINOPHEN
     Indication: BACK PAIN
  6. HYDROMORPHONE HYDROCHLORIDE. [Interacting]
     Active Substance: HYDROMORPHONE HYDROCHLORIDE
     Indication: BACK PAIN
     Dosage: UNK
     Route: 037
  7. PREGABALIN. [Interacting]
     Active Substance: PREGABALIN
     Indication: BACK PAIN
  8. PREGABALIN. [Interacting]
     Active Substance: PREGABALIN
     Indication: PELVIC PAIN
     Dosage: 150 MG, DAILY
     Route: 065
  9. DEXAMETHASONE. [Interacting]
     Active Substance: DEXAMETHASONE
     Indication: BACK PAIN
     Dosage: UP TO 16MG/DAY
     Route: 048
     Dates: start: 2013
  10. HYDROMORPHONE HYDROCHLORIDE. [Suspect]
     Active Substance: HYDROMORPHONE HYDROCHLORIDE
     Indication: PELVIC PAIN
     Dosage: 30 MG, DAILY
     Route: 051
     Dates: start: 2013

REACTIONS (4)
  - Hallucination [Recovered/Resolved]
  - Drug interaction [Recovered/Resolved]
  - Delirium [Recovered/Resolved]
  - Drug ineffective [Recovered/Resolved]
